FAERS Safety Report 8471172-7 (Version None)
Quarter: 2012Q2

REPORT INFORMATION
  Report Type: 
  Country: None (occurrence: None)
  Receive Date: 20120621
  Receipt Date: 20120612
  Transmission Date: 20120825
  Serious: Yes (Hospitalization, Other)
  Sender: FDA-Public Use
  Company Number: AUR-APL-2012-02626

PATIENT
  Age: 67 Year
  Sex: Male
  Weight: 101 kg

DRUGS (6)
  1. ASPIRIN [Concomitant]
  2. CLOPIDEGREL [Concomitant]
  3. RAMIPRIL [Suspect]
     Indication: MYOCARDIAL INFARCTION
     Dosage: (10 MG), ORAL
     Route: 048
     Dates: start: 20110530, end: 20120416
  4. CARVEDILOL [Concomitant]
  5. PREDNISOLONE [Concomitant]
  6. SIMVASTATIN [Concomitant]

REACTIONS (5)
  - SPEECH DISORDER [None]
  - SWOLLEN TONGUE [None]
  - SWELLING FACE [None]
  - LIP SWELLING [None]
  - JAW DISORDER [None]
